FAERS Safety Report 14535404 (Version 1)
Quarter: 2018Q1

REPORT INFORMATION
  Report Type: Spontaneous
  Country: AT (occurrence: AT)
  Receive Date: 20180215
  Receipt Date: 20180215
  Transmission Date: 20180509
  Serious: Yes (Hospitalization)
  Sender: FDA-Public Use
  Company Number: AT-MYLANLABS-2018M1009489

PATIENT
  Age: 42 Year
  Sex: Male

DRUGS (7)
  1. PREDNISONE. [Suspect]
     Active Substance: PREDNISONE
     Indication: NODULAR LYMPHOCYTE PREDOMINANT HODGKIN LYMPHOMA
     Route: 065
  2. CYCLOPHOSPHAMIDE. [Suspect]
     Active Substance: CYCLOPHOSPHAMIDE
     Indication: NODULAR LYMPHOCYTE PREDOMINANT HODGKIN LYMPHOMA
     Route: 065
  3. ETOPOSIDE. [Suspect]
     Active Substance: ETOPOSIDE
     Indication: NODULAR LYMPHOCYTE PREDOMINANT HODGKIN LYMPHOMA
     Route: 065
  4. BLEOMYCIN [Suspect]
     Active Substance: BLEOMYCIN SULFATE
     Indication: NODULAR LYMPHOCYTE PREDOMINANT HODGKIN LYMPHOMA
     Route: 065
  5. VINCRISTINE [Suspect]
     Active Substance: VINCRISTINE
     Indication: NODULAR LYMPHOCYTE PREDOMINANT HODGKIN LYMPHOMA
     Route: 065
  6. PROCARBAZINE [Suspect]
     Active Substance: PROCARBAZINE
     Indication: NODULAR LYMPHOCYTE PREDOMINANT HODGKIN LYMPHOMA
     Route: 065
  7. DOXORUBICIN [Suspect]
     Active Substance: DOXORUBICIN
     Indication: NODULAR LYMPHOCYTE PREDOMINANT HODGKIN LYMPHOMA
     Route: 065

REACTIONS (11)
  - Creatinine renal clearance decreased [Recovering/Resolving]
  - Fluid retention [Recovered/Resolved]
  - Anaemia [Recovering/Resolving]
  - Pyrexia [Recovered/Resolved]
  - Blood bilirubin increased [Recovered/Resolved]
  - Acute hepatic failure [Recovered/Resolved]
  - Thrombocytopenia [Recovering/Resolving]
  - Hepatotoxicity [Recovered/Resolved]
  - Septic shock [Recovered/Resolved]
  - Bone marrow toxicity [Recovering/Resolving]
  - Blood creatinine increased [Recovering/Resolving]
